FAERS Safety Report 15839662 (Version 1)
Quarter: 2019Q1

REPORT INFORMATION
  Report Type: Spontaneous
  Country: US (occurrence: US)
  Receive Date: 20190117
  Receipt Date: 20190117
  Transmission Date: 20190417
  Serious: No
  Sender: FDA-Public Use
  Company Number: US-PFIZER INC-2019021698

PATIENT
  Age: 13 Year
  Sex: Male

DRUGS (1)
  1. GENOTROPIN [Suspect]
     Active Substance: SOMATROPIN
     Indication: CRANIOPHARYNGIOMA
     Dosage: 3.7 MG, DAILY

REACTIONS (6)
  - Vomiting [Unknown]
  - LDL/HDL ratio increased [Unknown]
  - Hypotension [Unknown]
  - Product use in unapproved indication [Unknown]
  - Headache [Unknown]
  - Malaise [Unknown]

NARRATIVE: CASE EVENT DATE: 201804
